FAERS Safety Report 7560032-1 (Version None)
Quarter: 2011Q2

REPORT INFORMATION
  Report Type: 
  Country: None (occurrence: None)
  Receive Date: 20110621
  Receipt Date: 20110620
  Transmission Date: 20111010
  Serious: Yes (Death)
  Sender: FDA-Public Use
  Company Number: PHHY2011CA52307

PATIENT
  Sex: Male

DRUGS (2)
  1. SANDOSTATIN LAR [Suspect]
     Indication: SHORT-BOWEL SYNDROME
     Dosage: 20 MG, QMO
     Route: 030
     Dates: start: 20110126
  2. MORPHINE [Suspect]

REACTIONS (2)
  - CONFUSIONAL STATE [None]
  - DEATH [None]
